FAERS Safety Report 10029406 (Version 2)
Quarter: 2014Q2

REPORT INFORMATION
  Report Type: Report from Study
  Country: MX (occurrence: MX)
  Receive Date: 20140322
  Receipt Date: 20140417
  Transmission Date: 20141212
  Serious: Yes (Other)
  Sender: FDA-Public Use
  Company Number: PHHY2014MX033845

PATIENT
  Age: 51 Year
  Sex: Female

DRUGS (3)
  1. DIOVAN [Suspect]
     Indication: HYPERTENSION
     Dosage: 0.5 DF (320 MG), DAILY
     Route: 048
     Dates: start: 201306
  2. CITRACAL [Concomitant]
     Indication: MENOPAUSE
     Dosage: 1 DF, DAILY
     Route: 048
     Dates: start: 2008
  3. LEVOTHYROXINE [Concomitant]
     Indication: THYROID DISORDER
     Dosage: 1.5 DF, DAILY
     Route: 048
     Dates: start: 201306

REACTIONS (4)
  - Retinal detachment [Recovering/Resolving]
  - Procedural pain [Not Recovered/Not Resolved]
  - Drug prescribing error [Unknown]
  - Wrong technique in drug usage process [Not Recovered/Not Resolved]
